FAERS Safety Report 14821691 (Version 1)
Quarter: 2018Q2

REPORT INFORMATION
  Report Type: Spontaneous
  Country: US (occurrence: US)
  Receive Date: 20180427
  Receipt Date: 20180427
  Transmission Date: 20180711
  Serious: No
  Sender: FDA-Public Use
  Company Number: US-GLAXOSMITHKLINE-US2018GSK071474

PATIENT
  Sex: Male

DRUGS (1)
  1. TERBINAFINE TABLET [Suspect]
     Active Substance: TERBINAFINE
     Indication: PRODUCT USED FOR UNKNOWN INDICATION
     Dosage: UNK

REACTIONS (3)
  - Adverse drug reaction [Unknown]
  - Hypersensitivity [Unknown]
  - Urticaria [Unknown]
